FAERS Safety Report 7626816-6 (Version None)
Quarter: 2011Q3

REPORT INFORMATION
  Report Type: 
  Country: None (occurrence: None)
  Receive Date: 20110721
  Receipt Date: 20110718
  Transmission Date: 20111222
  Serious: No
  Sender: FDA-Public Use
  Company Number: US-BAYER-2011-063168

PATIENT
  Age: 44 Year
  Sex: Male

DRUGS (2)
  1. EXTAVIA [Suspect]
     Indication: MULTIPLE SCLEROSIS
     Dosage: 0.062 MG, QOD
     Route: 058
     Dates: start: 20110715
  2. CORTICOSTEROIDS [Concomitant]

REACTIONS (3)
  - CHILLS [None]
  - HYPERHIDROSIS [None]
  - GAIT DISTURBANCE [None]
